FAERS Safety Report 5386233-9 (Version None)
Quarter: 2007Q3

REPORT INFORMATION
  Report Type: 
  Country: None (occurrence: None)
  Receive Date: 20070713
  Receipt Date: 20070705
  Transmission Date: 20080115
  Serious: Yes (Hospitalization, Other)
  Sender: FDA-Public Use
  Company Number: PHHO2006AR10446

PATIENT
  Age: 27 Year
  Sex: Male
  Weight: 62.7 kg

DRUGS (7)
  1. CERTICAN [Suspect]
     Indication: RENAL TRANSPLANT
     Dosage: 1.44 G/DAY
     Route: 048
     Dates: start: 20060615, end: 20060625
  2. CERTICAN [Suspect]
     Dosage: 1.44 G/DAY
     Route: 048
     Dates: start: 20060627, end: 20060627
  3. CERTICAN [Suspect]
     Dosage: 1.44 G/DAY
     Route: 048
     Dates: start: 20060629
  4. CERTICAN [Suspect]
     Dosage: 720 MG DAILY
     Route: 048
     Dates: end: 20061024
  5. NEORAL [Suspect]
     Indication: RENAL TRANSPLANT
     Dosage: UNK, UNK
     Route: 048
     Dates: end: 20060626
  6. NEORAL [Suspect]
     Dosage: UNK, UNK
     Route: 048
     Dates: start: 20060627, end: 20060627
  7. NEORAL [Suspect]
     Dosage: 50 MG DAILY
     Route: 048
     Dates: start: 20060629, end: 20061024

REACTIONS (19)
  - ABDOMINAL PAIN [None]
  - COMPLICATIONS OF TRANSPLANT SURGERY [None]
  - COMPLICATIONS OF TRANSPLANTED KIDNEY [None]
  - DIARRHOEA [None]
  - HAEMATOMA EVACUATION [None]
  - HAEMODYNAMIC INSTABILITY [None]
  - HYPERPLASIA [None]
  - HYPOTENSION [None]
  - INTRA-ABDOMINAL HAEMATOMA [None]
  - LEUKOPENIA [None]
  - NEPHROPATHY TOXIC [None]
  - NEPHROSCLEROSIS [None]
  - PERINEPHRIC COLLECTION [None]
  - PYREXIA [None]
  - RENAL ATROPHY [None]
  - RENAL TUBULAR NECROSIS [None]
  - SURGERY [None]
  - URETERAL DISORDER [None]
  - URETERIC REPAIR [None]
